FAERS Safety Report 17450822 (Version 1)
Quarter: 2020Q1

REPORT INFORMATION
  Report Type: Spontaneous
  Country: US (occurrence: US)
  Receive Date: 20200224
  Receipt Date: 20200224
  Transmission Date: 20200409
  Serious: Yes (Hospitalization)
  Sender: FDA-Public Use
  Company Number: US-VERTEX PHARMACEUTICALS-2020-003371

PATIENT
  Age: 29 Year
  Sex: Male
  Weight: 66 kg

DRUGS (15)
  1. ZYRTEC [Concomitant]
     Active Substance: CETIRIZINE HYDROCHLORIDE
  2. TRIKAFTA [Suspect]
     Active Substance: ELEXACAFTOR\IVACAFTOR\TEZACAFTOR
     Indication: CYSTIC FIBROSIS
     Dosage: 2 ORANGE TABLETS IN AM; 1 BLUE TABLET IN PM
     Route: 048
  3. VITAMIN K1 [Concomitant]
     Active Substance: PHYTONADIONE
  4. HYPERSAL [Concomitant]
     Active Substance: SODIUM CHLORIDE
  5. ALBUTEROL SULFATE. [Concomitant]
     Active Substance: ALBUTEROL SULFATE
  6. FLAXSEED [Concomitant]
     Active Substance: FLAX SEED
  7. KEPPRA [Concomitant]
     Active Substance: LEVETIRACETAM
  8. PANCREAZE [AMYLASE;LIPASE;PROTEASE] [Concomitant]
  9. HUMALOG [Concomitant]
     Active Substance: INSULIN LISPRO
  10. TOBI PODHALER [Concomitant]
     Active Substance: TOBRAMYCIN
  11. NEXIUM I.V. [Concomitant]
     Active Substance: ESOMEPRAZOLE SODIUM
  12. CALCIUM + VIT D [Concomitant]
     Active Substance: CALCIUM\VITAMIN D
  13. CAYSTON [Concomitant]
     Active Substance: AZTREONAM
  14. PULMOZYME [Concomitant]
     Active Substance: DORNASE ALFA
  15. AZITHROMYCIN ANHYDROUS. [Concomitant]
     Active Substance: AZITHROMYCIN ANHYDROUS

REACTIONS (1)
  - Hospitalisation [Recovered/Resolved]

NARRATIVE: CASE EVENT DATE: 202001
